FAERS Safety Report 20263996 (Version 1)
Quarter: 2021Q4

REPORT INFORMATION
  Report Type: Spontaneous
  Country: CA (occurrence: CA)
  Receive Date: 20211231
  Receipt Date: 20211231
  Transmission Date: 20220303
  Serious: Yes (Other)
  Sender: FDA-Public Use
  Company Number: None

PATIENT
  Age: 67 Year
  Sex: Female

DRUGS (4)
  1. OXALIPLATIN [Suspect]
     Active Substance: OXALIPLATIN
     Indication: Neoplasm malignant
     Dosage: INJECTION SINGLE USE VIALS
     Route: 042
  2. IRINOTECAN HYDROCHLORIDE [Concomitant]
     Active Substance: IRINOTECAN HYDROCHLORIDE
     Dosage: SOLUTION INTRAVENOUS
  3. LEUCOVORIN [Concomitant]
     Active Substance: LEUCOVORIN
  4. FLUOROURACIL [Concomitant]
     Active Substance: FLUOROURACIL

REACTIONS (3)
  - Oropharyngeal discomfort [Recovered/Resolved]
  - Feeling cold [Recovered/Resolved]
  - Dysphonia [Recovered/Resolved]
